FAERS Safety Report 4655720-0 (Version None)
Quarter: 2005Q2

REPORT INFORMATION
  Report Type: 
  Country: None (occurrence: None)
  Receive Date: 20050505
  Receipt Date: 20050414
  Transmission Date: 20051028
  Serious: Yes (Hospitalization, Disabling)
  Sender: FDA-Public Use
  Company Number: JP_050306074

PATIENT
  Age: 80 Year
  Sex: Female

DRUGS (3)
  1. EVISTA [Suspect]
     Indication: OSTEOPOROSIS
     Dosage: 60 MG/1 DAY
     Dates: end: 20050126
  2. GLYBURIDE [Concomitant]
  3. SIGMART (NICORANDIL) [Concomitant]

REACTIONS (11)
  - BRAIN OEDEMA [None]
  - CEREBRAL INFARCTION [None]
  - DEPRESSED LEVEL OF CONSCIOUSNESS [None]
  - DISSEMINATED INTRAVASCULAR COAGULATION [None]
  - HEMIANOPIA HOMONYMOUS [None]
  - HEMIPLEGIA [None]
  - INTRACRANIAL VENOUS SINUS THROMBOSIS [None]
  - PNEUMONIA ASPIRATION [None]
  - SEPSIS [None]
  - STATUS EPILEPTICUS [None]
  - VISUAL FIELD DEFECT [None]
